FAERS Safety Report 22783636 (Version 2)
Quarter: 2024Q1

REPORT INFORMATION
  Report Type: Report from Study
  Country: CA (occurrence: CA)
  Receive Date: 20230803
  Receipt Date: 20240307
  Transmission Date: 20240409
  Serious: Yes (Hospitalization, Other)
  Sender: FDA-Public Use
  Company Number: CA-GLAXOSMITHKLINE-CA2023AMR100657

PATIENT
  Age: 81 Year
  Sex: Female

DRUGS (1)
  1. AMBRISENTAN [Suspect]
     Active Substance: AMBRISENTAN
     Indication: Pulmonary arterial hypertension
     Dosage: 10 MG, QD
     Route: 065
     Dates: start: 20101222

REACTIONS (6)
  - Haemorrhage subcutaneous [Unknown]
  - Cerebral haemorrhage [Unknown]
  - Fall [Unknown]
  - Skeletal injury [Unknown]
  - Contusion [Unknown]
  - Diarrhoea [Unknown]
